FAERS Safety Report 24962030 (Version 3)
Quarter: 2025Q3

REPORT INFORMATION
  Report Type: Report from Study
  Country: US (occurrence: US)
  Receive Date: 20250212
  Receipt Date: 20250909
  Transmission Date: 20251021
  Serious: Yes (Disabling)
  Sender: ABBVIE
  Company Number: US-ABBVIE-6126944

PATIENT
  Sex: Female
  Weight: 96 kg

DRUGS (2)
  1. HUMIRA [Suspect]
     Active Substance: ADALIMUMAB
     Indication: Rheumatoid arthritis
     Dosage: FORM STRENGTH: 40MG/0.4ML CITRATE FREE
     Route: 058
     Dates: end: 202412
  2. HUMIRA [Suspect]
     Active Substance: ADALIMUMAB
     Dosage: FORM STRENGTH: 40MG/0.4ML CITRATE FREE
     Route: 058
     Dates: start: 20250716

REACTIONS (6)
  - Blindness [Not Recovered/Not Resolved]
  - Condition aggravated [Not Recovered/Not Resolved]
  - Gait inability [Unknown]
  - Pain [Not Recovered/Not Resolved]
  - Pain in extremity [Unknown]
  - Cough [Recovered/Resolved]

NARRATIVE: CASE EVENT DATE: 20240901
